FAERS Safety Report 13549827 (Version 1)
Quarter: 2017Q2

REPORT INFORMATION
  Report Type: Spontaneous
  Country: US (occurrence: US)
  Receive Date: 20170516
  Receipt Date: 20170516
  Transmission Date: 20170830
  Serious: No
  Sender: FDA-Public Use
  Company Number: None

PATIENT
  Age: 90 Year
  Sex: Female
  Weight: 56.3 kg

DRUGS (7)
  1. IRON [Concomitant]
     Active Substance: IRON
  2. MULTIPLE [Concomitant]
  3. FISH OIL [Concomitant]
     Active Substance: FISH OIL
  4. METHOCARBAMOL 500 MG [Suspect]
     Active Substance: METHOCARBAMOL
     Indication: SCIATICA
     Route: 048
     Dates: start: 20170317, end: 20170326
  5. VITAMIN B12 [Concomitant]
     Active Substance: CYANOCOBALAMIN
  6. CALCIUM [Concomitant]
     Active Substance: CALCIUM
  7. FOLIC ACID. [Concomitant]
     Active Substance: FOLIC ACID

REACTIONS (9)
  - Memory impairment [None]
  - Confusional state [None]
  - Gait disturbance [None]
  - Dizziness [None]
  - Pruritus [None]
  - Heart rate decreased [None]
  - Vision blurred [None]
  - Fall [None]
  - Swelling [None]

NARRATIVE: CASE EVENT DATE: 20170317
